FAERS Safety Report 6248116-1 (Version None)
Quarter: 2009Q2

REPORT INFORMATION
  Report Type: 
  Country: None (occurrence: None)
  Receive Date: 20090624
  Receipt Date: 20090624
  Transmission Date: 20091009
  Serious: Yes (Disabling)
  Sender: FDA-Public Use
  Company Number: None

PATIENT
  Age: 62 Year
  Sex: Female
  Weight: 99.7913 kg

DRUGS (4)
  1. AZITHROMYCIN/250 MG/PAKTA TEVA IN ISRAEL BY - TEVA PHARM IND. LTD. JER [Suspect]
     Indication: EYE INFECTION
     Dosage: 6 PILLS -} 2 - 1ST DAY 1 - 4 DAYS 2 PILLS - STOP TAKING
     Dates: start: 20070527, end: 20090531
  2. AZITHROMYCIN/250 MG/PAKTA TEVA IN ISRAEL BY - TEVA PHARM IND. LTD. JER [Suspect]
     Indication: NASOPHARYNGITIS
     Dosage: 6 PILLS -} 2 - 1ST DAY 1 - 4 DAYS 2 PILLS - STOP TAKING
     Dates: start: 20070527, end: 20090531
  3. AZITHROMYCIN/250 MG/PAKTA TEVA IN ISRAEL BY - TEVA PHARM IND. LTD. JER [Suspect]
     Indication: EYE INFECTION
     Dosage: 6 PILLS -} 2 - 1ST DAY 1 - 4 DAYS 2 PILLS - STOP TAKING
     Dates: start: 20090602
  4. AZITHROMYCIN/250 MG/PAKTA TEVA IN ISRAEL BY - TEVA PHARM IND. LTD. JER [Suspect]
     Indication: NASOPHARYNGITIS
     Dosage: 6 PILLS -} 2 - 1ST DAY 1 - 4 DAYS 2 PILLS - STOP TAKING
     Dates: start: 20090602

REACTIONS (3)
  - DEAFNESS [None]
  - DYSPHONIA [None]
  - TINNITUS [None]
